FAERS Safety Report 7470748-3 (Version None)
Quarter: 2011Q2

REPORT INFORMATION
  Report Type: 
  Country: None (occurrence: None)
  Receive Date: 20110510
  Receipt Date: 20110504
  Transmission Date: 20111010
  Serious: Yes (Hospitalization)
  Sender: FDA-Public Use
  Company Number: PHHO2011IT07760

PATIENT
  Sex: Female

DRUGS (5)
  1. RAMIPRIL [Concomitant]
  2. CILOSTAZOL [Concomitant]
  3. PRAVASTATIN [Concomitant]
  4. TASIGNA [Suspect]
     Indication: CHRONIC MYELOID LEUKAEMIA
     Dosage: 200 MG, UNK
     Route: 048
     Dates: start: 20080207
  5. FUROSEMIDE [Concomitant]

REACTIONS (1)
  - AORTIC ARTERIOSCLEROSIS [None]
